FAERS Safety Report 23447163 (Version 4)
Quarter: 2025Q1

REPORT INFORMATION
  Report Type: Report from Study
  Country: FR (occurrence: FR)
  Receive Date: 20240126
  Receipt Date: 20250108
  Transmission Date: 20250409
  Serious: Yes (Hospitalization)
  Sender: TAKEDA
  Company Number: FR-TAKEDA-2023TUS115298

PATIENT
  Age: 56 Year
  Sex: Female
  Weight: 56 kg

DRUGS (22)
  1. VELAGLUCERASE ALFA [Suspect]
     Active Substance: VELAGLUCERASE ALFA
     Indication: Gaucher^s disease
     Dosage: 60 INTERNATIONAL UNIT/KILOGRAM, Q2WEEKS
     Dates: start: 20111222, end: 20130320
  2. VELAGLUCERASE ALFA [Suspect]
     Active Substance: VELAGLUCERASE ALFA
     Dosage: 53 INTERNATIONAL UNIT/KILOGRAM, Q2WEEKS
     Dates: start: 20130403, end: 20130722
  3. VELAGLUCERASE ALFA [Suspect]
     Active Substance: VELAGLUCERASE ALFA
     Dosage: 53 INTERNATIONAL UNIT/KILOGRAM, Q2WEEKS
     Dates: start: 20140909, end: 20190411
  4. VELAGLUCERASE ALFA [Suspect]
     Active Substance: VELAGLUCERASE ALFA
     Dosage: 60 INTERNATIONAL UNIT/KILOGRAM, Q2WEEKS
     Dates: start: 20201211, end: 20210723
  5. VELAGLUCERASE ALFA [Suspect]
     Active Substance: VELAGLUCERASE ALFA
     Dosage: 42 INTERNATIONAL UNIT/KILOGRAM, Q2WEEKS
     Dates: start: 20220513, end: 20231223
  6. DOLIPRANE [Concomitant]
     Active Substance: ACETAMINOPHEN
     Indication: Analgesic therapy
     Dosage: 1 GRAM, QID
  7. KETOPROFEN [Concomitant]
     Active Substance: KETOPROFEN
     Indication: Bone pain
     Dosage: 100 MILLIGRAM, BID
     Dates: start: 20110617, end: 201605
  8. CHOLECALCIFEROL [Concomitant]
     Active Substance: CHOLECALCIFEROL
     Indication: Hypovitaminosis
     Dosage: 100000 INTERNATIONAL UNIT, Q3MONTHS
     Dates: start: 2015
  9. CHOLECALCIFEROL [Concomitant]
     Active Substance: CHOLECALCIFEROL
     Dosage: UNK UNK, SINGLE
     Dates: start: 20210710, end: 20210723
  10. VANCOMYCIN [Concomitant]
     Active Substance: VANCOMYCIN
     Indication: Abscess
     Dates: start: 20150505, end: 20150507
  11. AMOXICILLIN [Concomitant]
     Active Substance: AMOXICILLIN
     Indication: Groin abscess
     Dates: start: 20150507, end: 20150511
  12. NIMENRIX [Concomitant]
     Active Substance: CLOSTRIDIUM TETANI TOXOID ANTIGEN (FORMALDEHYDE INACTIVATED)\MENINGOCOCCAL POLYSACCHARIDE VACCINE, G
     Indication: Meningococcal immunisation
     Dosage: 0.5 MILLILITER, SINGLE
     Dates: start: 20160602, end: 20160602
  13. LANSOPRAZOLE [Concomitant]
     Active Substance: LANSOPRAZOLE
     Indication: Gastrooesophageal reflux disease
     Dosage: 30 MILLIGRAM, BID
     Dates: start: 20160602, end: 20160717
  14. GAVISCON [Concomitant]
     Active Substance: ALUMINUM HYDROXIDE\MAGNESIUM CARBONATE
     Indication: Gastrooesophageal reflux disease
     Dates: start: 20160602, end: 20160717
  15. GAVISCON [Concomitant]
     Active Substance: ALUMINUM HYDROXIDE\MAGNESIUM CARBONATE
     Dosage: UNK UNK, TID
     Dates: start: 201712, end: 201801
  16. LIDOCAINE [Concomitant]
     Active Substance: LIDOCAINE
     Indication: Pain
     Dosage: UNK UNK, QD
     Route: 061
     Dates: start: 20160602
  17. ESOMEPRAZOLE [Concomitant]
     Active Substance: ESOMEPRAZOLE
     Indication: Gastrooesophageal reflux disease
     Dosage: 20 MILLIGRAM, QD
     Dates: start: 201712, end: 201801
  18. POLYETHYLENE GLYCOLS [Concomitant]
     Active Substance: POLYETHYLENE GLYCOLS
     Indication: Constipation prophylaxis
     Dosage: UNK UNK, BID
     Dates: start: 201712, end: 20180322
  19. KETOPROFEN [Concomitant]
     Active Substance: KETOPROFEN
     Indication: Bone pain
     Dosage: 100 MILLIGRAM, BID
     Dates: start: 201712, end: 20180322
  20. ZOPICLONE [Concomitant]
     Active Substance: ZOPICLONE
     Indication: Insomnia
     Dosage: 7.5 MILLIGRAM, QD
     Dates: start: 201712, end: 20180322
  21. CYMBALTA [Concomitant]
     Active Substance: DULOXETINE HYDROCHLORIDE
     Indication: Depression
     Dosage: 60 MILLIGRAM, QD
     Dates: start: 20180102, end: 20180322
  22. DIETARY SUPPLEMENT [Concomitant]
     Active Substance: DIETARY SUPPLEMENT
     Indication: Nutritional supplementation

REACTIONS (1)
  - Tendon disorder [Recovering/Resolving]

NARRATIVE: CASE EVENT DATE: 20220801
